FAERS Safety Report 8027680-6 (Version None)
Quarter: 2012Q1

REPORT INFORMATION
  Report Type: 
  Country: None (occurrence: None)
  Receive Date: 20120106
  Receipt Date: 20111231
  Transmission Date: 20120608
  Serious: Yes (Other)
  Sender: FDA-Public Use
  Company Number: FR-JNJFOC-20110708469

PATIENT
  Sex: Female
  Weight: 74 kg

DRUGS (25)
  1. ALPRAZOLAM [Concomitant]
  2. KETOPROFEN [Interacting]
     Indication: PRODUCT USED FOR UNKNOWN INDICATION
  3. TRAMADOL HCL [Concomitant]
  4. ACETAMINOPHEN [Concomitant]
  5. REMIFENTANIL [Concomitant]
  6. KETAMINE HCL [Concomitant]
  7. ACETAMINOPHEN [Concomitant]
  8. KETOPROFEN [Concomitant]
  9. ASPIRIN [Concomitant]
  10. XARELTO [Suspect]
     Indication: HIP ARTHROPLASTY
     Route: 048
     Dates: start: 20100511, end: 20100515
  11. HETASTARCH IN SODIUM CHLORIDE [Concomitant]
  12. IRBESARTAN AND HYDROCHLOROTHIAZIDE [Concomitant]
  13. XARELTO [Suspect]
     Route: 048
  14. OMEPRAZOLE [Concomitant]
  15. CEFUROXIME [Concomitant]
  16. ASPIRIN [Interacting]
     Indication: PRODUCT USED FOR UNKNOWN INDICATION
  17. MORPHINE [Concomitant]
  18. NEFOPAM [Concomitant]
  19. PANFUREX [Concomitant]
  20. LEVOTHYROXINE SODIUM [Concomitant]
  21. LORAZEPAM [Concomitant]
  22. ASPIRIN [Interacting]
     Indication: PRODUCT USED FOR UNKNOWN INDICATION
  23. PROPOFOL [Concomitant]
  24. EPHEDRINE [Concomitant]
  25. TRANSIPEG [Concomitant]

REACTIONS (4)
  - MELAENA [None]
  - HAEMORRHAGIC ANAEMIA [None]
  - PULMONARY EMBOLISM [None]
  - DRUG INTERACTION [None]
